FAERS Safety Report 9703331 (Version 1)
Quarter: 2013Q4

REPORT INFORMATION
  Report Type: Report from Study
  Country: US (occurrence: US)
  Receive Date: 20131122
  Receipt Date: 20131122
  Transmission Date: 20140711
  Serious: Yes (Other)
  Sender: FDA-Public Use
  Company Number: US-ROCHE-1304183

PATIENT
  Sex: Female

DRUGS (16)
  1. XELODA [Suspect]
     Indication: BREAST CANCER
     Dosage: TAKE 3 (1000MG/M2)
     Route: 048
     Dates: start: 20131104
  2. CELEXA (UNITED STATES) [Concomitant]
     Route: 065
  3. EMLA [Concomitant]
     Dosage: AS DIRECTED
     Route: 061
  4. FENTANYL [Concomitant]
     Dosage: 50MCG/HR, TAKE 1 PATCH TOPICALAS DIRECTED
     Route: 062
  5. HYDROCODONE/ACETAMINOPHEN [Concomitant]
     Indication: PAIN
     Dosage: 10/325 MG, TAKE 1 PO Q 4H PRN
     Route: 048
  6. IMODIUM A-D [Concomitant]
     Route: 048
  7. KLOR-CON M20 [Concomitant]
     Dosage: PARTICLES/CRYSTALS
     Route: 048
  8. LASIX [Concomitant]
     Dosage: MORNING
     Route: 048
  9. MEGACE [Concomitant]
     Dosage: 400MG/10ML SUSPENSION TAKE 20ML
     Route: 048
  10. PANTOPRAZOLE SODIUM [Concomitant]
     Dosage: ENTERIC COATED TAKE 1 PO DAILY
     Route: 048
  11. PROCHLORPERAZINE MALEATE [Concomitant]
     Indication: NAUSEA
     Dosage: PRN
     Route: 048
  12. RITALIN [Concomitant]
     Dosage: TAKE 30MG PO QAM AND 20MG PO Q AFTERNOON
     Route: 048
  13. SLOW-MAG [Concomitant]
     Dosage: AS DIRECTED
     Route: 048
  14. XANAX [Concomitant]
     Indication: ANXIETY
     Dosage: PRN
     Route: 048
  15. ZOFRAN ODT [Concomitant]
     Dosage: TAKE 1 ODT PRN
     Route: 048
  16. FOLIC ACID [Concomitant]
     Dosage: TAKE 5 PO DAILY. INSTRUCTIONS:FOLIC ACID 5MG PO
     Route: 048

REACTIONS (4)
  - Compression fracture [Unknown]
  - Iron deficiency [Unknown]
  - Anaemia [Unknown]
  - Dehydration [Unknown]
